FAERS Safety Report 13494500 (Version 3)
Quarter: 2017Q2

REPORT INFORMATION
  Report Type: Spontaneous
  Country: BR (occurrence: BR)
  Receive Date: 20170428
  Receipt Date: 20170607
  Transmission Date: 20170830
  Serious: Yes (Other)
  Sender: FDA-Public Use
  Company Number: BR-ROCHE-1922687

PATIENT
  Age: 68 Year
  Sex: Male

DRUGS (3)
  1. GABAPENTIN. [Concomitant]
     Active Substance: GABAPENTIN
  2. RIVOTRIL [Suspect]
     Active Substance: CLONAZEPAM
     Indication: PRODUCT USED FOR UNKNOWN INDICATION
     Route: 065
  3. TRAMAL [Concomitant]
     Active Substance: TRAMADOL

REACTIONS (12)
  - Visual impairment [Unknown]
  - Aggression [Unknown]
  - Fall [Unknown]
  - Urinary incontinence [Unknown]
  - Swelling [Unknown]
  - Product dropper issue [Unknown]
  - Overdose [Unknown]
  - Tongue disorder [Unknown]
  - Back injury [Unknown]
  - Amnesia [Unknown]
  - Blood pressure decreased [Unknown]
  - Muscle contracture [Unknown]

NARRATIVE: CASE EVENT DATE: 20170415
